FAERS Safety Report 15935086 (Version 1)
Quarter: 2019Q1

REPORT INFORMATION
  Report Type: Spontaneous
  Country: FR (occurrence: FR)
  Receive Date: 20190207
  Receipt Date: 20190207
  Transmission Date: 20190417
  Serious: Yes (Hospitalization)
  Sender: FDA-Public Use
  Company Number: FR-009507513-1901FRA011525

PATIENT
  Age: 78 Year
  Sex: Female
  Weight: 96 kg

DRUGS (2)
  1. RULID [Interacting]
     Active Substance: ROXITHROMYCIN
     Indication: BRONCHITIS
     Dosage: 300 MILLIGRAM, QD
     Route: 048
     Dates: start: 20190108, end: 20190116
  2. INEGY [Suspect]
     Active Substance: EZETIMIBE\SIMVASTATIN
     Indication: HYPERCHOLESTEROLAEMIA
     Dosage: 1 DOSAGE FORM, QD
     Route: 048
     Dates: start: 20190117, end: 20190118

REACTIONS (2)
  - Pancreatitis acute [Recovered/Resolved]
  - Inhibitory drug interaction [Recovered/Resolved]

NARRATIVE: CASE EVENT DATE: 20190117
